FAERS Safety Report 6068610-6 (Version None)
Quarter: 2009Q1

REPORT INFORMATION
  Report Type: 
  Country: None (occurrence: None)
  Receive Date: 20090206
  Receipt Date: 20090129
  Transmission Date: 20090719
  Serious: Yes (Hospitalization, Other)
  Sender: FDA-Public Use
  Company Number: US-AVENTIS-200910808US

PATIENT
  Sex: Female
  Weight: 74.09 kg

DRUGS (15)
  1. LOVENOX [Suspect]
     Dosage: DOSE: UNK
     Dates: start: 19950101
  2. PLAQUENIL                          /00072601/ [Concomitant]
  3. PREDNISONE [Concomitant]
     Dosage: DOSE: UNK
  4. NORVASC [Concomitant]
  5. COLACE [Concomitant]
     Dosage: DOSE: UNK
  6. HYDROCHLOROTHIAZIDE [Concomitant]
     Dosage: DOSE: 'SMALL DOSE^
  7. COZAAR [Concomitant]
     Dosage: DOSE: UNK
  8. SINGULAIR [Concomitant]
     Indication: ASTHMA
     Dosage: DOSE: UNK
  9. THYROID PREPARATIONS [Concomitant]
     Indication: THYROID DISORDER
     Dosage: DOSE: UNK
  10. CITRACAL [Concomitant]
     Dosage: DOSE: UNK
  11. MULTI-VITAMINS [Concomitant]
     Dosage: DOSE: UNK
  12. ASPIRIN [Concomitant]
     Dosage: DOSE QUANTITY: 325
  13. OXCARBAZEPINE [Concomitant]
  14. ZETIA [Concomitant]
     Dosage: DOSE: UNK
  15. ALL OTHER THERAPEUTIC PRODUCTS [Concomitant]
     Dosage: DOSE: UNK

REACTIONS (3)
  - CEREBROVASCULAR ACCIDENT [None]
  - CONVULSION [None]
  - PNEUMOCYSTIS JIROVECI PNEUMONIA [None]
